FAERS Safety Report 5055347-5 (Version None)
Quarter: 2006Q3

REPORT INFORMATION
  Report Type: 
  Country: None (occurrence: None)
  Receive Date: 20060718
  Receipt Date: 20060718
  Transmission Date: 20061208
  Serious: Yes (Hospitalization)
  Sender: FDA-Public Use
  Company Number: None

PATIENT
  Age: 46 Year
  Sex: Female
  Weight: 62.5964 kg

DRUGS (3)
  1. TEGRETOL-XR [Suspect]
     Indication: CONVULSION
     Dosage: 40 MG BID PO
     Route: 048
  2. DILANTIN [Concomitant]
  3. DEPAKOTE [Concomitant]

REACTIONS (4)
  - CEREBRAL PALSY [None]
  - CONVULSION [None]
  - DEHYDRATION [None]
  - MENTAL RETARDATION SEVERITY UNSPECIFIED [None]
